FAERS Safety Report 19561889 (Version 8)
Quarter: 2021Q3

REPORT INFORMATION
  Report Type: Report from Study
  Country: GB (occurrence: GB)
  Receive Date: 20210715
  Receipt Date: 20210917
  Transmission Date: 20211014
  Serious: Yes (Death, Hospitalization, Other)
  Sender: FDA-Public Use
  Company Number: GB-EISAI MEDICAL RESEARCH-EC-2021-095694

PATIENT
  Age: 55 Year
  Sex: Female

DRUGS (55)
  1. NAB PACLITAXEL [Suspect]
     Active Substance: PACLITAXEL
     Indication: BREAST CANCER
     Route: 042
     Dates: start: 20170816, end: 20170906
  2. CHLORPHENAMINE [Concomitant]
     Active Substance: CHLORPHENIRAMINE MALEATE
     Route: 048
     Dates: start: 20170526, end: 20170530
  3. CIPROFLOXACIN. [Concomitant]
     Active Substance: CIPROFLOXACIN
     Indication: ABDOMINAL PAIN UPPER
     Route: 065
     Dates: start: 20200707, end: 202007
  4. CIPROFLOXACIN. [Concomitant]
     Active Substance: CIPROFLOXACIN
     Indication: CHOLECYSTITIS ACUTE
     Route: 065
     Dates: start: 20200909, end: 20200916
  5. DERMOVATE [Concomitant]
     Active Substance: CLOBETASOL
  6. TEICOPLANIN [Concomitant]
     Active Substance: TEICOPLANIN
     Route: 042
     Dates: start: 20200925, end: 20200925
  7. NAB PACLITAXEL [Suspect]
     Active Substance: PACLITAXEL
     Route: 042
     Dates: start: 20170705, end: 20170726
  8. TRASTUZUMAB. [Suspect]
     Active Substance: TRASTUZUMAB
     Route: 042
     Dates: start: 20170524, end: 20170524
  9. AZTREONAM. [Concomitant]
     Active Substance: AZTREONAM
     Indication: PRODUCT CONTAMINATION MICROBIAL
     Route: 042
     Dates: start: 20201028, end: 20201104
  10. SORBINICATE [Concomitant]
     Active Substance: SORBINICATE
     Route: 060
     Dates: start: 20170526, end: 2017
  11. TEICOPLANIN [Concomitant]
     Active Substance: TEICOPLANIN
     Indication: BILIARY SEPSIS
     Route: 042
     Dates: start: 20200502, end: 20200515
  12. TINZAPARIN [Concomitant]
     Active Substance: TINZAPARIN
     Route: 058
     Dates: start: 20190916, end: 20191008
  13. NAB PACLITAXEL [Suspect]
     Active Substance: PACLITAXEL
     Route: 042
     Dates: start: 20170614, end: 20170614
  14. NERATINIB [Suspect]
     Active Substance: NERATINIB
     Indication: BREAST CANCER
     Route: 048
     Dates: start: 20200919, end: 20201104
  15. TRASTUZUMAB. [Suspect]
     Active Substance: TRASTUZUMAB
     Indication: BREAST CANCER
     Route: 042
     Dates: start: 20180516, end: 20190327
  16. TRASTUZUMAB EMTANSINE [Suspect]
     Active Substance: ADO-TRASTUZUMAB EMTANSINE
     Indication: BREAST CANCER
     Route: 042
     Dates: start: 20190627, end: 20190718
  17. METRONIDAZOLE. [Concomitant]
     Active Substance: METRONIDAZOLE
     Indication: DUODENAL ULCER
     Route: 065
     Dates: start: 20200909, end: 20200914
  18. METRONIDAZOLE. [Concomitant]
     Active Substance: METRONIDAZOLE
     Indication: CHOLECYSTITIS ACUTE
     Route: 048
     Dates: start: 20201116, end: 202011
  19. METRONIDAZOLE. [Concomitant]
     Active Substance: METRONIDAZOLE
     Route: 042
     Dates: start: 20200925, end: 20200927
  20. PARACETAMOL [Concomitant]
     Active Substance: ACETAMINOPHEN
     Route: 048
     Dates: start: 20170525, end: 20210205
  21. SANDO?K [Concomitant]
     Route: 048
     Dates: start: 20170525, end: 20170529
  22. CALCICHEW D3 FORTE [Concomitant]
     Active Substance: CALCIUM\CHOLECALCIFEROL
     Route: 048
     Dates: start: 20170525, end: 20210205
  23. CEFUROXIME. [Concomitant]
     Active Substance: CEFUROXIME
     Route: 048
     Dates: start: 20200925, end: 20201019
  24. IKERVIS [Concomitant]
     Active Substance: CYCLOSPORINE
     Indication: BLEPHARITIS
     Route: 047
     Dates: start: 201708, end: 2018
  25. PERTUZUMAB. [Suspect]
     Active Substance: PERTUZUMAB
     Route: 042
     Dates: start: 20170524, end: 20170524
  26. TRASTUZUMAB. [Suspect]
     Active Substance: TRASTUZUMAB
     Route: 042
     Dates: start: 20170614, end: 20180425
  27. TRASTUZUMAB EMTANSINE [Suspect]
     Active Substance: ADO-TRASTUZUMAB EMTANSINE
     Route: 042
     Dates: start: 20190829, end: 20200326
  28. AMITRIPTYLINE [Concomitant]
     Active Substance: AMITRIPTYLINE
     Indication: DEPRESSED MOOD
     Route: 048
     Dates: start: 20190827, end: 20190919
  29. CHLORHEXIDINE GLUCONATE. [Concomitant]
     Active Substance: CHLORHEXIDINE GLUCONATE
     Route: 061
     Dates: start: 20170525, end: 2017
  30. DOMPERIDONE [Concomitant]
     Active Substance: DOMPERIDONE
     Route: 048
     Dates: start: 20170523, end: 20170526
  31. TRANEXAMIC ACID. [Concomitant]
     Active Substance: TRANEXAMIC ACID
     Dosage: UNCHECKED ONGOING 1 G (GRAM) TABLET PO (ORAL) TID (THREE
     Route: 048
     Dates: start: 20201111, end: 20201112
  32. VANCOMYCIN [Concomitant]
     Active Substance: VANCOMYCIN
     Indication: CLOSTRIDIUM DIFFICILE INFECTION
     Route: 048
     Dates: start: 20201104, end: 20201113
  33. ERIBULIN [Suspect]
     Active Substance: ERIBULIN
     Indication: BREAST CANCER
     Route: 042
     Dates: start: 20200611, end: 20200820
  34. PERTUZUMAB. [Suspect]
     Active Substance: PERTUZUMAB
     Indication: BREAST CANCER
     Route: 042
     Dates: start: 20170614, end: 20190327
  35. CETIRIZINE [Concomitant]
     Active Substance: CETIRIZINE HYDROCHLORIDE
     Indication: URTICARIA PAPULAR
     Route: 048
     Dates: start: 20190313, end: 2019
  36. CLOBETASOL PROPIONATE. [Concomitant]
     Active Substance: CLOBETASOL PROPIONATE
     Route: 061
     Dates: start: 20170210, end: 201708
  37. CEFTRIAXONE. [Concomitant]
     Active Substance: CEFTRIAXONE
     Route: 042
  38. VANCOMYCIN [Concomitant]
     Active Substance: VANCOMYCIN
     Dosage: CAPSULE PO (ORAL) QID (FOUR TIMES A DAY)
     Route: 048
     Dates: end: 20201113
  39. ZOLEDRONIC ACID [Concomitant]
     Active Substance: ZOLEDRONIC ACID
     Route: 042
     Dates: start: 20170525, end: 20201022
  40. DOCETAXEL. [Suspect]
     Active Substance: DOCETAXEL
     Indication: BREAST CANCER
     Route: 042
     Dates: start: 20170525, end: 20170525
  41. AMITRIPTYLINE [Concomitant]
     Active Substance: AMITRIPTYLINE
     Route: 048
     Dates: start: 20190827, end: 20190919
  42. CEFUROXIME. [Concomitant]
     Active Substance: CEFUROXIME
     Indication: PRODUCT CONTAMINATION MICROBIAL
     Route: 048
     Dates: start: 20201028
  43. FUSIDIC ACID [Concomitant]
     Active Substance: FUSIDIC ACID
     Indication: RHINITIS
     Route: 065
     Dates: start: 201905, end: 201905
  44. LANSOPRAZOLE. [Concomitant]
     Active Substance: LANSOPRAZOLE
     Indication: GASTRITIS
     Route: 048
     Dates: start: 20190730, end: 202010
  45. METRONIDAZOLE. [Concomitant]
     Active Substance: METRONIDAZOLE
     Indication: ABDOMINAL PAIN UPPER
     Route: 042
     Dates: start: 20200630, end: 20200709
  46. TINZAPARIN [Concomitant]
     Active Substance: TINZAPARIN
     Route: 058
     Dates: start: 20170713, end: 20190723
  47. TRANEXAMIC ACID. [Concomitant]
     Active Substance: TRANEXAMIC ACID
     Indication: DUODENAL ULCER
     Route: 065
     Dates: start: 20190722, end: 201907
  48. CAPECITABINE. [Suspect]
     Active Substance: CAPECITABINE
     Indication: BREAST CANCER
     Dosage: FREQUENCY NOT PROVIDED
     Route: 048
     Dates: start: 20201020
  49. TRASTUZUMAB EMTANSINE [Suspect]
     Active Substance: ADO-TRASTUZUMAB EMTANSINE
     Route: 042
     Dates: start: 20190427, end: 20190606
  50. AMITRIPTYLINE [Concomitant]
     Active Substance: AMITRIPTYLINE
     Route: 048
  51. CEFTRIAXONE. [Concomitant]
     Active Substance: CEFTRIAXONE
     Indication: PRODUCT CONTAMINATION MICROBIAL
     Route: 048
     Dates: start: 20200928, end: 20201012
  52. LOPERAMIDE [Concomitant]
     Active Substance: LOPERAMIDE
     Route: 048
     Dates: start: 20170613, end: 20201113
  53. TEICOPLANIN [Concomitant]
     Active Substance: TEICOPLANIN
     Indication: PRODUCT CONTAMINATION MICROBIAL
     Route: 042
     Dates: start: 20201028, end: 20201104
  54. TRANEXAMIC ACID. [Concomitant]
     Active Substance: TRANEXAMIC ACID
     Indication: COAGULOPATHY
     Route: 048
     Dates: start: 20201112, end: 20201113
  55. VANCOMYCIN [Concomitant]
     Active Substance: VANCOMYCIN
     Route: 048
     Dates: start: 20201030, end: 20201104

REACTIONS (3)
  - Pyrexia [Recovered/Resolved]
  - Malignant neoplasm progression [Fatal]
  - Abdominal pain [Recovered/Resolved]

NARRATIVE: CASE EVENT DATE: 20200724
